FAERS Safety Report 13998277 (Version 1)
Quarter: 2017Q3

REPORT INFORMATION
  Report Type: Spontaneous
  Country: US (occurrence: None)
  Receive Date: 20170921
  Receipt Date: 20170921
  Transmission Date: 20171128
  Serious: No
  Sender: FDA-Public Use
  Company Number: None

PATIENT
  Age: 58 Year
  Sex: Female
  Weight: 86.18 kg

DRUGS (2)
  1. CYTOXAN [Suspect]
     Active Substance: CYCLOPHOSPHAMIDE
  2. IBRUTINIB [Suspect]
     Active Substance: IBRUTINIB
     Dates: start: 201605, end: 201605

REACTIONS (3)
  - Nausea [None]
  - Blood blister [None]
  - Vomiting [None]
